FAERS Safety Report 4493362-0 (Version None)
Quarter: 2004Q4

REPORT INFORMATION
  Report Type: 
  Country: None (occurrence: None)
  Receive Date: 20041104
  Receipt Date: 20041025
  Transmission Date: 20050328
  Serious: Yes (Hospitalization)
  Sender: FDA-Public Use
  Company Number: AU-MERCK-0410AUS00251

PATIENT
  Age: 45 Year
  Sex: Female

DRUGS (4)
  1. NOROXIN [Suspect]
     Indication: URINARY TRACT INFECTION
     Route: 048
  2. ATENOLOL [Concomitant]
     Route: 065
  3. RAMIPRIL [Concomitant]
     Route: 065
  4. LEVOTHYROXINE SODIUM [Concomitant]
     Route: 065

REACTIONS (2)
  - ARTHRALGIA [None]
  - JOINT SWELLING [None]
